FAERS Safety Report 4577028-4 (Version None)
Quarter: 2005Q1

REPORT INFORMATION
  Report Type: 
  Country: None (occurrence: None)
  Receive Date: 20050210
  Receipt Date: 20050131
  Transmission Date: 20050727
  Serious: Yes (Other)
  Sender: FDA-Public Use
  Company Number: DE-SANOFI-SYNTHELABO-A04200500094

PATIENT
  Sex: Female

DRUGS (2)
  1. QUENSYL [Suspect]
     Indication: RHEUMATOID ARTHRITIS
     Dosage: UNK
     Route: 048
     Dates: start: 20040101
  2. GLAUCOMA MEDICATION [Concomitant]
     Dosage: UNK
     Route: 065

REACTIONS (3)
  - CONDITION AGGRAVATED [None]
  - OPTIC NERVE DISORDER [None]
  - VISUAL FIELD DEFECT [None]
